FAERS Safety Report 5018151-X (Version None)
Quarter: 2006Q2

REPORT INFORMATION
  Report Type: 
  Country: None (occurrence: None)
  Receive Date: 20060605
  Receipt Date: 20060523
  Transmission Date: 20061013
  Serious: Yes (Death)
  Sender: FDA-Public Use
  Company Number: US-JNJFOC-20060405842

PATIENT
  Sex: Female

DRUGS (1)
  1. RAZADYNE [Suspect]
     Indication: DEMENTIA

REACTIONS (6)
  - DEMENTIA [None]
  - FALL [None]
  - GENERAL PHYSICAL HEALTH DETERIORATION [None]
  - PLEURAL EFFUSION [None]
  - RESPIRATORY TRACT INFECTION [None]
  - SUBDURAL HAEMATOMA [None]
